FAERS Safety Report 14366836 (Version 2)
Quarter: 2018Q2

REPORT INFORMATION
  Report Type: Spontaneous
  Country: US (occurrence: US)
  Receive Date: 20180109
  Receipt Date: 20180615
  Transmission Date: 20180711
  Serious: Yes (Other)
  Sender: FDA-Public Use
  Company Number: US-ASTRAZENECA-2018SE02343

PATIENT
  Age: 868 Month
  Sex: Female
  Weight: 107 kg

DRUGS (29)
  1. NEXIUM 24HR [Suspect]
     Active Substance: ESOMEPRAZOLE MAGNESIUM
     Indication: GASTROOESOPHAGEAL REFLUX DISEASE
     Route: 048
     Dates: start: 2016, end: 2017
  2. SYNTHROID [Concomitant]
     Active Substance: LEVOTHYROXINE SODIUM
     Indication: VITAMIN D DEFICIENCY
     Dates: start: 2001, end: 2008
  3. CELEBREX [Concomitant]
     Active Substance: CELECOXIB
     Indication: VITAMIN D DEFICIENCY
     Dates: start: 2001, end: 2007
  4. NEURONTIN [Concomitant]
     Active Substance: GABAPENTIN
     Indication: VITAMIN D DEFICIENCY
     Dates: start: 2018
  5. OXYCONTIN [Concomitant]
     Active Substance: OXYCODONE HYDROCHLORIDE
     Indication: VITAMIN D DEFICIENCY
     Dates: start: 2001, end: 2002
  6. OXYCONTIN [Concomitant]
     Active Substance: OXYCODONE HYDROCHLORIDE
     Indication: VITAMIN D DEFICIENCY
     Dates: start: 2011, end: 2017
  7. OMEPRAZOLE. [Suspect]
     Active Substance: OMEPRAZOLE
     Indication: GASTROOESOPHAGEAL REFLUX DISEASE
     Route: 048
     Dates: start: 2009, end: 2017
  8. BENADRYL [Concomitant]
     Active Substance: DIPHENHYDRAMINE HYDROCHLORIDE
     Indication: HYPERSENSITIVITY
     Dates: start: 1998
  9. ATIVAN [Concomitant]
     Active Substance: LORAZEPAM
     Indication: VITAMIN D DEFICIENCY
     Dates: start: 1998, end: 2017
  10. AZITHROMYCIN ANHYDROUS. [Concomitant]
     Active Substance: AZITHROMYCIN ANHYDROUS
     Indication: VITAMIN D DEFICIENCY
     Dates: start: 2016
  11. NEXIUM [Suspect]
     Active Substance: ESOMEPRAZOLE MAGNESIUM
     Indication: GASTROOESOPHAGEAL REFLUX DISEASE
     Route: 048
     Dates: start: 2013, end: 2015
  12. LEVOTHROID [Concomitant]
     Active Substance: LEVOTHYROXINE SODIUM
     Indication: VITAMIN D DEFICIENCY
     Dates: start: 1980
  13. HYDROCHLOROTHIAZIDE. [Concomitant]
     Active Substance: HYDROCHLOROTHIAZIDE
     Indication: VITAMIN D DEFICIENCY
     Dates: start: 2001, end: 2009
  14. TYLENOL [Concomitant]
     Active Substance: ACETAMINOPHEN
     Indication: PAIN
     Dates: start: 1998
  15. TRAZODONE [Concomitant]
     Active Substance: TRAZODONE HYDROCHLORIDE
     Indication: VITAMIN D DEFICIENCY
     Dates: start: 2017
  16. TRADJENTA [Concomitant]
     Active Substance: LINAGLIPTIN
     Indication: VITAMIN D DEFICIENCY
     Dates: start: 2013, end: 201802
  17. VIOXX [Concomitant]
     Active Substance: ROFECOXIB
     Indication: VITAMIN D DEFICIENCY
     Dates: start: 2001, end: 2004
  18. ZITHROMAX [Concomitant]
     Active Substance: AZITHROMYCIN DIHYDRATE
     Indication: VITAMIN D DEFICIENCY
     Dates: start: 2001, end: 2002
  19. VITAMIN D [Concomitant]
     Active Substance: CHOLECALCIFEROL
     Indication: VITAMIN D DEFICIENCY
     Dates: start: 2010
  20. CELEXA [Concomitant]
     Active Substance: CITALOPRAM HYDROBROMIDE
     Indication: VITAMIN D DEFICIENCY
     Dates: start: 2014
  21. AMOXICILLIN. [Concomitant]
     Active Substance: AMOXICILLIN
     Indication: VITAMIN D DEFICIENCY
     Dates: start: 2006
  22. CRESTOR [Concomitant]
     Active Substance: ROSUVASTATIN CALCIUM
     Indication: VITAMIN D DEFICIENCY
     Dates: start: 2015, end: 2016
  23. PANTOPRAZOLE [Suspect]
     Active Substance: PANTOPRAZOLE
     Indication: GASTROOESOPHAGEAL REFLUX DISEASE
     Route: 065
     Dates: start: 2009, end: 2012
  24. PREVACID [Suspect]
     Active Substance: LANSOPRAZOLE
     Indication: GASTROOESOPHAGEAL REFLUX DISEASE
     Route: 065
     Dates: start: 2000, end: 2009
  25. SENIOR MULTI-VITAMIN [Concomitant]
     Indication: SUPPLEMENTATION THERAPY
     Dates: start: 2010
  26. LOSARTAN. [Concomitant]
     Active Substance: LOSARTAN
     Indication: VITAMIN D DEFICIENCY
     Dates: start: 2014
  27. DIOVAN [Concomitant]
     Active Substance: VALSARTAN
     Indication: VITAMIN D DEFICIENCY
     Dates: start: 2008, end: 2012
  28. CIPROFLOXACIN. [Concomitant]
     Active Substance: CIPROFLOXACIN
     Indication: VITAMIN D DEFICIENCY
     Dates: start: 2008
  29. VOLTAREN [Concomitant]
     Active Substance: DICLOFENAC SODIUM
     Indication: VITAMIN D DEFICIENCY
     Dates: start: 2008

REACTIONS (1)
  - Chronic kidney disease [Unknown]

NARRATIVE: CASE EVENT DATE: 201211
